FAERS Safety Report 11374536 (Version 1)
Quarter: 2015Q3

REPORT INFORMATION
  Report Type: Spontaneous
  Country: GB (occurrence: GB)
  Receive Date: 20150813
  Receipt Date: 20150813
  Transmission Date: 20151125
  Serious: Yes (Hospitalization)
  Sender: FDA-Public Use
  Company Number: GB-ALKEM-001108

PATIENT
  Age: 31 Year
  Sex: Male

DRUGS (2)
  1. METRONIDAZOLE. [Suspect]
     Active Substance: METRONIDAZOLE
     Indication: APPENDICITIS
     Route: 042
     Dates: start: 20150705, end: 20150705
  2. CEFUROXIME. [Suspect]
     Active Substance: CEFUROXIME
     Indication: APPENDICITIS
     Route: 042
     Dates: start: 20150705, end: 20150705

REACTIONS (7)
  - Vision blurred [Recovered/Resolved]
  - Lack of spontaneous speech [Recovered/Resolved]
  - VIIth nerve paralysis [Recovered/Resolved]
  - Paralysis [Recovered/Resolved]
  - Palpitations [Recovered/Resolved]
  - Blepharospasm [Recovered/Resolved]
  - Dyspnoea [Recovered/Resolved]

NARRATIVE: CASE EVENT DATE: 20150705
